FAERS Safety Report 7696780 (Version 2)
Quarter: 2016Q2

REPORT INFORMATION
  Report Type: Spontaneous
  Country: US (occurrence: US)
  Receive Date: 20101207
  Receipt Date: 20160614
  Transmission Date: 20160815
  Serious: Yes (Other)
  Sender: FDA-Public Use
  Company Number: US-AMGEN-USASP2010007380

PATIENT
  Sex: Female
  Weight: 72.56 kg

DRUGS (1)
  1. NPLATE [Suspect]
     Active Substance: ROMIPLOSTIM
     Indication: IMMUNE THROMBOCYTOPENIC PURPURA
     Dosage: 70 MUG, QWK
     Route: 058
     Dates: start: 20091214, end: 20100427

REACTIONS (2)
  - Platelet count decreased [Recovered/Resolved]
  - Metrorrhagia [Unknown]
